FAERS Safety Report 24180774 (Version 1)
Quarter: 2024Q3

REPORT INFORMATION
  Report Type: Spontaneous
  Country: US (occurrence: US)
  Receive Date: 20240806
  Receipt Date: 20240806
  Transmission Date: 20241016
  Serious: No
  Sender: BRISTOL MYERS SQUIBB
  Company Number: US-BRISTOL-MYERS SQUIBB COMPANY-2024-123619

PATIENT
  Age: 89 Year
  Sex: Female
  Weight: 58.51 kg

DRUGS (1)
  1. POMALYST [Suspect]
     Active Substance: POMALIDOMIDE
     Indication: Kaposi^s sarcoma
     Dosage: DAILY FOR 21 DAYS ON, THEN 7 DAYS OF
     Route: 048
     Dates: start: 20240401

REACTIONS (1)
  - Cognitive disorder [Recovering/Resolving]
